FAERS Safety Report 23468849 (Version 1)
Quarter: 2024Q1

REPORT INFORMATION
  Report Type: Spontaneous
  Country: IT (occurrence: IT)
  Receive Date: 20240202
  Receipt Date: 20240202
  Transmission Date: 20240410
  Serious: Yes (Death, Other)
  Sender: FDA-Public Use
  Company Number: None

PATIENT
  Age: 81 Year
  Sex: Male
  Weight: 69 kg

DRUGS (2)
  1. CARBOPLATIN [Suspect]
     Active Substance: CARBOPLATIN
     Indication: Small cell lung cancer
     Dosage: 1 VIAL IV 10 MG/ML 45 ML (IN 0.9% NACL SOLUTION) ADMINISTERED DOSE: 280 MG (IV /1H)
     Route: 042
     Dates: start: 20230108, end: 20230108
  2. ETOPOSIDE [Suspect]
     Active Substance: ETOPOSIDE
     Indication: Small cell lung cancer
     Dosage: 1 BOTTLE IV 100 MG/5 ML (20 MG/ML) (IN 0.9% NACL SOLUTION) DOSE ADMINISTERED 150 MG (IV /1H)
     Route: 042
     Dates: start: 20230108, end: 20230108

REACTIONS (1)
  - Cardiac arrest [Fatal]

NARRATIVE: CASE EVENT DATE: 20230109
